FAERS Safety Report 18430788 (Version 1)
Quarter: 2020Q4

REPORT INFORMATION
  Report Type: Spontaneous
  Country: US (occurrence: US)
  Receive Date: 20201027
  Receipt Date: 20201027
  Transmission Date: 20210114
  Serious: No
  Sender: FDA-Public Use
  Company Number: US-JNJFOC-20201037746

PATIENT
  Age: 66 Year

DRUGS (1)
  1. CHILDRENS ZYRTEC [Suspect]
     Active Substance: CETIRIZINE HYDROCHLORIDE
     Indication: PRODUCT USED FOR UNKNOWN INDICATION
     Route: 065
     Dates: start: 202010

REACTIONS (3)
  - Feeling abnormal [Unknown]
  - Hypoaesthesia oral [Unknown]
  - Tinnitus [Unknown]

NARRATIVE: CASE EVENT DATE: 202010
